FAERS Safety Report 7127462-3 (Version None)
Quarter: 2010Q4

REPORT INFORMATION
  Report Type: 
  Country: None (occurrence: None)
  Receive Date: 20101129
  Receipt Date: 20100706
  Transmission Date: 20110411
  Serious: No
  Sender: FDA-Public Use
  Company Number: US-PFIZER INC-2010065722

PATIENT
  Sex: Female
  Weight: 146 kg

DRUGS (3)
  1. REVATIO [Suspect]
     Indication: PULMONARY ARTERIAL HYPERTENSION
     Dosage: 20 MG, 3X/DAY
     Route: 048
     Dates: start: 20100201
  2. VALSARTAN [Concomitant]
     Indication: CARDIAC DISORDER
     Dosage: 160 MG DAILY
     Route: 048
  3. VALSARTAN [Concomitant]
     Indication: HYPERTENSION

REACTIONS (1)
  - FLUSHING [None]
